FAERS Safety Report 8452296-7 (Version None)
Quarter: 2012Q2

REPORT INFORMATION
  Report Type: 
  Country: None (occurrence: None)
  Receive Date: 20120620
  Receipt Date: 20120510
  Transmission Date: 20120825
  Serious: Yes (Hospitalization)
  Sender: FDA-Public Use
  Company Number: US-VERTEX PHARMACEUTICALS INC.-AE-2012-004916

PATIENT
  Sex: Female
  Weight: 63.56 kg

DRUGS (3)
  1. RIBASPHERE [Concomitant]
     Indication: HEPATITIS C
     Dates: start: 20120318, end: 20120508
  2. PEGASYS [Concomitant]
     Indication: HEPATITIS C
     Route: 058
     Dates: start: 20120318, end: 20120508
  3. INCIVEK [Suspect]
     Indication: HEPATITIS C
     Route: 048
     Dates: start: 20120318, end: 20120508

REACTIONS (4)
  - ANAEMIA [None]
  - ANORECTAL DISCOMFORT [None]
  - RASH ERYTHEMATOUS [None]
  - RENAL FUNCTION TEST ABNORMAL [None]
